FAERS Safety Report 6011653-9 (Version None)
Quarter: 2008Q4

REPORT INFORMATION
  Report Type: 
  Country: None (occurrence: None)
  Receive Date: 20081218
  Receipt Date: 19860303
  Transmission Date: 20090506
  Serious: Yes (Death, Life-Threatening)
  Sender: FDA-Public Use
  Company Number: SE-ROCHE-860101865001

PATIENT
  Age: 44 Year
  Sex: Male

DRUGS (2)
  1. INTERFERON ALFA-2A [Suspect]
     Indication: RENAL CELL CARCINOMA
     Route: 030
     Dates: start: 19831123, end: 19840323
  2. FARLUTAL [Suspect]
     Indication: RENAL CELL CARCINOMA
     Route: 030
     Dates: start: 19830524, end: 19831121

REACTIONS (2)
  - ANAEMIA [None]
  - DISEASE PROGRESSION [None]
